FAERS Safety Report 14019270 (Version 1)
Quarter: 2017Q3

REPORT INFORMATION
  Report Type: Spontaneous
  Country: US (occurrence: US)
  Receive Date: 20170928
  Receipt Date: 20170928
  Transmission Date: 20171128
  Serious: No
  Sender: FDA-Public Use
  Company Number: US-BION-005935

PATIENT
  Sex: Female

DRUGS (1)
  1. LOPERAMIDE SOFT-GEL CAPSULES 2 MG [Suspect]
     Active Substance: LOPERAMIDE
     Indication: DIARRHOEA
     Dosage: EVENING
     Dates: start: 20170123

REACTIONS (2)
  - Somnolence [Unknown]
  - Dizziness [Unknown]
